FAERS Safety Report 13397263 (Version 1)
Quarter: 2017Q2

REPORT INFORMATION
  Report Type: Spontaneous
  Country: DE (occurrence: DE)
  Receive Date: 20170403
  Receipt Date: 20170403
  Transmission Date: 20170830
  Serious: Yes (Life-Threatening, Other)
  Sender: FDA-Public Use
  Company Number: DE-PFIZER INC-2017136797

PATIENT
  Age: 62 Year
  Sex: Female

DRUGS (4)
  1. NOVALGIN [Concomitant]
     Active Substance: METAMIZOLE SODIUM
  2. TRAMADOL. [Concomitant]
     Active Substance: TRAMADOL
  3. GABAPENTIN. [Suspect]
     Active Substance: GABAPENTIN
     Indication: PAIN
     Dosage: UNK
     Dates: start: 2015, end: 201610
  4. GABAPENTIN. [Suspect]
     Active Substance: GABAPENTIN
     Indication: FRACTURE
     Dosage: 2X300MG
     Dates: start: 201610

REACTIONS (11)
  - Prothrombin time prolonged [Unknown]
  - Tremor [Unknown]
  - Product use in unapproved indication [Unknown]
  - Alopecia [Unknown]
  - Coagulation time shortened [Unknown]
  - Muscle atrophy [Unknown]
  - Muscle twitching [Unknown]
  - Contusion [Unknown]
  - Skin haemorrhage [Unknown]
  - Pruritus [Unknown]
  - Erythema [Unknown]

NARRATIVE: CASE EVENT DATE: 2015
